FAERS Safety Report 8577255-5 (Version None)
Quarter: 2012Q3

REPORT INFORMATION
  Report Type: 
  Country: None (occurrence: None)
  Receive Date: 20120807
  Receipt Date: 20120803
  Transmission Date: 20120928
  Serious: No
  Sender: FDA-Public Use
  Company Number: US-PFIZER INC-2012189462

PATIENT
  Age: 62 Year
  Sex: Female
  Weight: 79.365 kg

DRUGS (3)
  1. LATANOPROST [Suspect]
     Indication: GLAUCOMA
     Dosage: UNK
  2. COUMADIN [Concomitant]
     Dosage: UNK
  3. PRILOSEC [Concomitant]
     Indication: DYSPEPSIA
     Dosage: UNK

REACTIONS (1)
  - DRUG INEFFECTIVE [None]
